FAERS Safety Report 18641037 (Version 1)
Quarter: 2020Q4

REPORT INFORMATION
  Report Type: Spontaneous
  Country: US (occurrence: US)
  Receive Date: 20201221
  Receipt Date: 20201221
  Transmission Date: 20210114
  Serious: No
  Sender: FDA-Public Use
  Company Number: US-CELLTRION INC.-2020US031675

PATIENT

DRUGS (2)
  1. TRUXIMA [Suspect]
     Active Substance: RITUXIMAB-ABBS
     Dosage: ^1000 MG DAY 1 AND DAY 15 EVERY 6 MONTHS
     Dates: start: 20201020
  2. TRUXIMA [Suspect]
     Active Substance: RITUXIMAB-ABBS
     Indication: MYASTHENIA GRAVIS
     Dosage: ^1000 MG DAY 1 AND DAY 15 EVERY 6 MONTHS
     Dates: start: 20200918

REACTIONS (1)
  - Off label use [Unknown]
